FAERS Safety Report 23798633 (Version 1)
Quarter: 2024Q2

REPORT INFORMATION
  Report Type: Spontaneous
  Country: US (occurrence: None)
  Receive Date: 20240427
  Receipt Date: 20240427
  Transmission Date: 20240715
  Serious: Yes (Other)
  Sender: FDA-Public Use
  Company Number: None

PATIENT
  Age: 56 Year
  Weight: 58.5 kg

DRUGS (1)
  1. IBANDRONATE SODIUM [Suspect]
     Active Substance: IBANDRONATE SODIUM
     Indication: Osteopenia
     Dosage: OTHER QUANTITY : 1 TABLET(S);?OTHER FREQUENCY : MONTHLY;?
     Route: 048
     Dates: start: 20210317, end: 20230403

REACTIONS (7)
  - Joint swelling [None]
  - Arthralgia [None]
  - Fatigue [None]
  - Muscle atrophy [None]
  - Weight decreased [None]
  - Pain in jaw [None]
  - Pain in extremity [None]

NARRATIVE: CASE EVENT DATE: 20210317
